FAERS Safety Report 5957069-2 (Version None)
Quarter: 2008Q4

REPORT INFORMATION
  Report Type: 
  Country: None (occurrence: None)
  Receive Date: 20081118
  Receipt Date: 20081106
  Transmission Date: 20090506
  Serious: Yes (Other)
  Sender: FDA-Public Use
  Company Number: PHBS2008TW06333

PATIENT

DRUGS (1)
  1. TELBIVUDINE [Suspect]
     Indication: HEPATITIS B

REACTIONS (2)
  - HEPATIC FAILURE [None]
  - VIRAL INFECTION [None]
